FAERS Safety Report 6869768-9 (Version None)
Quarter: 2010Q3

REPORT INFORMATION
  Report Type: 
  Country: None (occurrence: None)
  Receive Date: 20100722
  Receipt Date: 20080910
  Transmission Date: 20110219
  Serious: No
  Sender: FDA-Public Use
  Company Number: US-PFIZER INC-2008066122

PATIENT
  Sex: Female
  Weight: 64.5 kg

DRUGS (1)
  1. CHANTIX [Suspect]
     Indication: SMOKING CESSATION THERAPY
     Route: 048
     Dates: start: 20080725, end: 20080803

REACTIONS (3)
  - FATIGUE [None]
  - HYPERSOMNIA [None]
  - IRRITABILITY [None]
